FAERS Safety Report 9521164 (Version 2)
Quarter: 2018Q4

REPORT INFORMATION
  Report Type: Report from Study
  Country: NL (occurrence: NL)
  Receive Date: 20130913
  Receipt Date: 20181119
  Transmission Date: 20190205
  Serious: Yes (Death, Other)
  Sender: FDA-Public Use
  Company Number: NL-ROCHE-1272012

PATIENT

DRUGS (2)
  1. BEVACIZUMAB. [Suspect]
     Active Substance: BEVACIZUMAB
     Indication: AGE-RELATED MACULAR DEGENERATION
     Dosage: 1.25 MG IN 0.05 ML SOLUTION
     Route: 050
  2. BEVACIZUMAB. [Suspect]
     Active Substance: BEVACIZUMAB
     Indication: OFF LABEL USE

REACTIONS (11)
  - Cerebrovascular accident [Unknown]
  - Off label use [Fatal]
  - Retinal pigment epithelial tear [Unknown]
  - Angiopathy [Fatal]
  - Transient ischaemic attack [Unknown]
  - Pseudoendophthalmitis [Unknown]
  - Intentional product use issue [Fatal]
  - Arterial thrombosis [Fatal]
  - Death [Fatal]
  - Endophthalmitis [Unknown]
  - Eye disorder [Unknown]
